FAERS Safety Report 7577031-6 (Version None)
Quarter: 2011Q2

REPORT INFORMATION
  Report Type: 
  Country: None (occurrence: None)
  Receive Date: 20110628
  Receipt Date: 20110622
  Transmission Date: 20111010
  Serious: No
  Sender: FDA-Public Use
  Company Number: US-PFIZER INC-2011139475

PATIENT
  Sex: Female

DRUGS (1)
  1. DEPO-PROVERA [Suspect]
     Dosage: 150 MG, UNK
     Dates: start: 20110501

REACTIONS (5)
  - ANXIETY [None]
  - TREMOR [None]
  - DIZZINESS [None]
  - SWOLLEN TONGUE [None]
  - NAUSEA [None]
